FAERS Safety Report 5867494-6 (Version None)
Quarter: 2008Q3

REPORT INFORMATION
  Report Type: 
  Country: None (occurrence: None)
  Receive Date: 20080902
  Receipt Date: 20080821
  Transmission Date: 20090109
  Serious: Yes (Life-Threatening)
  Sender: FDA-Public Use
  Company Number: PL-BAXTER-2008BH008940

PATIENT
  Age: 81 Year
  Sex: Male
  Weight: 57 kg

DRUGS (1)
  1. SODIUM CHLORIDE 0.9% IN PLASTIC CONTAINER [Suspect]
     Indication: DEHYDRATION
     Route: 042
     Dates: start: 20080819, end: 20080819

REACTIONS (3)
  - CONVULSION [None]
  - DYSPNOEA [None]
  - PALPITATIONS [None]
